FAERS Safety Report 5390797-9 (Version None)
Quarter: 2007Q3

REPORT INFORMATION
  Report Type: 
  Country: None (occurrence: None)
  Receive Date: 20070718
  Receipt Date: 20070620
  Transmission Date: 20080115
  Serious: Yes (Death, Hospitalization)
  Sender: FDA-Public Use
  Company Number: CH-MERCK-0611CHE00001

PATIENT
  Age: 62 Year
  Sex: Male

DRUGS (7)
  1. PRIMAXIN [Suspect]
     Indication: SEPSIS
     Route: 042
     Dates: start: 20060705, end: 20060707
  2. AMOXICILLIN [Suspect]
     Indication: CELLULITIS
     Route: 048
     Dates: start: 20060625, end: 20060705
  3. AMOXICILLIN [Suspect]
     Indication: ABSCESS ORAL
     Route: 048
     Dates: start: 20060625, end: 20060705
  4. MEROPENEM [Suspect]
     Indication: SEPSIS
     Route: 042
     Dates: start: 20060707, end: 20060709
  5. VANCOMYCIN [Concomitant]
     Route: 042
     Dates: start: 20060705, end: 20060709
  6. DOXYCYCLINE HYCLATE [Concomitant]
     Indication: SEPSIS
     Route: 042
     Dates: start: 20060707, end: 20060709
  7. DROTRECOGIN ALFA [Concomitant]
     Indication: SHOCK
     Route: 042
     Dates: start: 20060707, end: 20060710

REACTIONS (3)
  - MULTI-ORGAN FAILURE [None]
  - SEPTIC SHOCK [None]
  - TOXIC EPIDERMAL NECROLYSIS [None]
